FAERS Safety Report 13273281 (Version 1)
Quarter: 2017Q1

REPORT INFORMATION
  Report Type: Spontaneous
  Country: AR (occurrence: AR)
  Receive Date: 20170227
  Receipt Date: 20170227
  Transmission Date: 20170428
  Serious: Yes (Hospitalization, Other)
  Sender: FDA-Public Use
  Company Number: AR-BAYER-2017-036822

PATIENT
  Age: 63 Year
  Sex: Male

DRUGS (2)
  1. ADEMPAS [Suspect]
     Active Substance: RIOCIGUAT
     Dosage: 1 DF, TID
     Route: 048
     Dates: start: 20170102
  2. RELIVERAN [Concomitant]
     Dosage: UNK

REACTIONS (4)
  - Mallory-Weiss syndrome [Recovered/Resolved]
  - Nausea [Recovered/Resolved]
  - Upper gastrointestinal haemorrhage [Recovered/Resolved]
  - Vomiting [Recovered/Resolved]

NARRATIVE: CASE EVENT DATE: 20170120
